FAERS Safety Report 5670097-X (Version None)
Quarter: 2008Q1

REPORT INFORMATION
  Report Type: 
  Country: None (occurrence: None)
  Receive Date: 20080312
  Receipt Date: 20080229
  Transmission Date: 20080703
  Serious: Yes (Death, Other)
  Sender: FDA-Public Use
  Company Number: 2006VX001788

PATIENT
  Age: 74 Year
  Sex: Female

DRUGS (10)
  1. TASMAR [Suspect]
     Indication: PARKINSON'S DISEASE
     Dosage: 100 MG; TID; PO;  50 MG; TID; PO
     Route: 048
     Dates: start: 19980101
  2. TASMAR [Suspect]
     Indication: PARKINSON'S DISEASE
     Dosage: 100 MG; TID; PO;  50 MG; TID; PO
     Route: 048
     Dates: start: 19980101
  3. IBUPROFEN [Concomitant]
  4. TYLENOL NO.2 [Concomitant]
  5. ARTANE [Concomitant]
  6. PROVERA [Concomitant]
  7. PERMAX [Concomitant]
  8. PREMARIN [Concomitant]
  9. ASPIRIN 10GR TIMED DISINTEGRATION TAB [Concomitant]
  10. SINEMET [Concomitant]

REACTIONS (26)
  - ANTINUCLEAR ANTIBODY POSITIVE [None]
  - BILIARY CIRRHOSIS [None]
  - BLOOD FIBRINOGEN DECREASED [None]
  - BLOOD GLUCOSE INCREASED [None]
  - BLOOD IRON INCREASED [None]
  - DEPRESSED LEVEL OF CONSCIOUSNESS [None]
  - DIARRHOEA [None]
  - DILATATION ATRIAL [None]
  - GALLBLADDER DISORDER [None]
  - GLUCOSE URINE PRESENT [None]
  - HAEMATURIA [None]
  - HEPATIC FAILURE [None]
  - HEPATIC NECROSIS [None]
  - HEPATITIS FULMINANT [None]
  - HYPERAMMONAEMIA [None]
  - KETONURIA [None]
  - LYMPHADENOPATHY [None]
  - MITRAL VALVE DISEASE [None]
  - NEUTROPHILIA [None]
  - PLEURAL EFFUSION [None]
  - PORTAL HYPERTENSION [None]
  - PULMONARY OEDEMA [None]
  - RESPIRATORY DISTRESS [None]
  - TRICUSPID VALVE DISEASE [None]
  - VOMITING [None]
  - WEIGHT DECREASED [None]
